FAERS Safety Report 12275740 (Version 1)
Quarter: 2016Q2

REPORT INFORMATION
  Report Type: Spontaneous
  Country: US (occurrence: US)
  Receive Date: 20160418
  Receipt Date: 20160418
  Transmission Date: 20160815
  Serious: Yes (Other)
  Sender: FDA-Public Use
  Company Number: US-AUROBINDO-AUR-APL-2016-04607

PATIENT

DRUGS (1)
  1. BUPIVACAINE HYDROCHLORIDE. [Suspect]
     Active Substance: BUPIVACAINE HYDROCHLORIDE
     Indication: PRODUCT USED FOR UNKNOWN INDICATION
     Dosage: 1/12%, 10 ML PER HOURWAS SET WITH A 3 ML BOLUS EVERY 20 MINUTES
     Route: 065

REACTIONS (6)
  - Musculoskeletal chest pain [Recovered/Resolved]
  - Hypercapnia [Unknown]
  - Abdominal pain [Recovered/Resolved]
  - Hypotension [Recovered/Resolved]
  - Hypoxia [Unknown]
  - Condition aggravated [Unknown]
